FAERS Safety Report 9847041 (Version 1)
Quarter: 2014Q1

REPORT INFORMATION
  Report Type: Spontaneous
  Country: US (occurrence: ES)
  Receive Date: 20140127
  Receipt Date: 20140127
  Transmission Date: 20141002
  Serious: Yes (Death, Life-Threatening)
  Sender: FDA-Public Use
  Company Number: ES-FRI-1000053092

PATIENT
  Age: 80 Year
  Sex: Male
  Weight: 90 kg

DRUGS (12)
  1. ROFLUMILAST [Suspect]
     Indication: CHRONIC OBSTRUCTIVE PULMONARY DISEASE
     Dosage: 1 DF
     Route: 048
     Dates: start: 20121115
  2. SPIRIVA [Concomitant]
  3. SERETIDE [Concomitant]
  4. DIANBEN [Concomitant]
     Dosage: 850 MG
  5. ADIRO [Concomitant]
     Dosage: 300 MG
  6. EXFORGE HCT [Concomitant]
  7. VENTOLIN [Concomitant]
  8. OXYGEN [Concomitant]
     Dosage: 1.5 L
  9. OMEPRAZOLE [Concomitant]
  10. GLICARIDA [Concomitant]
  11. DAFLON [Concomitant]
     Dosage: 500 MG
  12. ALLOPURINOL [Concomitant]
     Dosage: 300 MG

REACTIONS (1)
  - Weight decreased [Fatal]
